FAERS Safety Report 4929181-8 (Version None)
Quarter: 2006Q1

REPORT INFORMATION
  Report Type: 
  Country: None (occurrence: None)
  Receive Date: 20060228
  Receipt Date: 20060228
  Transmission Date: 20060701
  Serious: Yes (Hospitalization)
  Sender: FDA-Public Use
  Company Number: None

PATIENT
  Age: 67 Year
  Sex: Female
  Weight: 77.1115 kg

DRUGS (13)
  1. COUMADIN [Suspect]
     Indication: MITRAL VALVE REPLACEMENT
     Dates: start: 20060209, end: 20060219
  2. DIGITEK [Concomitant]
  3. AMITRIPTYLINE HCL [Concomitant]
  4. EVISTA [Concomitant]
  5. GABEPENTIN [Concomitant]
  6. DIOXAN [Concomitant]
  7. COREG [Concomitant]
  8. ASPIRIN [Concomitant]
  9. DIAZEPAM [Concomitant]
  10. DARVOCET-N 100 [Concomitant]
  11. ALLOPRINNOL [Concomitant]
  12. NITROFURANTOIN [Concomitant]
  13. DOCUSATE SODIUM [Concomitant]

REACTIONS (5)
  - ASTHENIA [None]
  - BLOOD POTASSIUM INCREASED [None]
  - CONFUSIONAL STATE [None]
  - DRUG TOXICITY [None]
  - TREATMENT NONCOMPLIANCE [None]
